FAERS Safety Report 7909430-4 (Version None)
Quarter: 2011Q4

REPORT INFORMATION
  Report Type: 
  Country: None (occurrence: None)
  Receive Date: 20111111
  Receipt Date: 20111108
  Transmission Date: 20120403
  Serious: Yes (Hospitalization)
  Sender: FDA-Public Use
  Company Number: US-B.I. PHARMACEUTICALS,INC./RIDGEFIELD-2011-BP-22560BP

PATIENT
  Age: 60 Year
  Sex: Male
  Weight: 100 kg

DRUGS (13)
  1. SIMVASTATIN [Concomitant]
     Dosage: 20 MG
  2. ASPIRIN [Concomitant]
  3. PEPCID [Concomitant]
     Dosage: 20 MG
  4. LISINOPRIL [Concomitant]
     Dosage: 20 MG
  5. NEURONTIN [Concomitant]
     Dosage: 200 MG
  6. LASIX [Concomitant]
     Dosage: 20 MG
  7. COREG [Concomitant]
     Dosage: 12.5 MG
  8. NAPROXEN (ALEVE) [Concomitant]
  9. PRADAXA [Suspect]
     Indication: ATRIAL FIBRILLATION
     Dosage: 300 MG
     Dates: start: 20110901, end: 20110909
  10. DIGOXIN [Concomitant]
     Dosage: 0.25 MG
  11. POTASSIUM CHLORIDE [Concomitant]
     Dosage: 20 MEQ
  12. MAGNESIUM OXIDE [Concomitant]
     Dosage: 800 MG
  13. ALLOPURINOL [Concomitant]
     Dosage: 300 MG

REACTIONS (3)
  - HAEMATOCHEZIA [None]
  - GASTRITIS [None]
  - GASTROINTESTINAL HAEMORRHAGE [None]
